FAERS Safety Report 7364938-8 (Version None)
Quarter: 2011Q1

REPORT INFORMATION
  Report Type: 
  Country: None (occurrence: None)
  Receive Date: 20110316
  Receipt Date: 20110316
  Transmission Date: 20110831
  Serious: Yes (Other)
  Sender: FDA-Public Use
  Company Number: None

PATIENT
  Age: 68 Year
  Sex: Female
  Weight: 86.1834 kg

DRUGS (5)
  1. PRED FORTE [Concomitant]
  2. ALPHAGAN [Concomitant]
  3. CIPROFLOXACIN [Suspect]
     Indication: PREOPERATIVE CARE
     Dosage: 1 2X DAY ORAL
     Route: 048
     Dates: start: 20110223, end: 20110224
  4. CIPROFLOXACIN [Suspect]
     Indication: ANTIBIOTIC THERAPY
     Dosage: 1 2X DAY ORAL
     Route: 048
     Dates: start: 20110223, end: 20110224
  5. LUMIGAN [Concomitant]

REACTIONS (2)
  - EYE IRRITATION [None]
  - INSOMNIA [None]
